FAERS Safety Report 8858356 (Version 1)
Quarter: 2012Q4

REPORT INFORMATION
  Report Type: 
  Country: US (occurrence: US)
  Receive Date: 20121024
  Receipt Date: 20121024
  Transmission Date: 20130627
  Serious: No
  Sender: FDA-Public Use
  Company Number: US-AMGEN-USASP2012000107

PATIENT
  Age: 46 Year
  Sex: Female

DRUGS (8)
  1. ENBREL [Suspect]
     Indication: PRODUCT USED FOR UNKNOWN INDICATION
     Dosage: 50 mg, 2 times/wk
     Route: 058
  2. PREMARIN [Concomitant]
     Dosage: 0.625 mg, UNK
  3. HYDROXYZINE-2 HCL [Concomitant]
     Dosage: 25 mg, UNK
  4. LORATADINE [Concomitant]
     Dosage: 10 mg, UNK
  5. SERTRALINE [Concomitant]
     Dosage: 50 mg, UNK
  6. BACTRIM [Concomitant]
     Dosage: UNK
  7. CLOBETASOL [Concomitant]
     Dosage: 0.05 %, UNK
  8. DESOXIMETASONE [Concomitant]
     Dosage: 0.25 %, UNK

REACTIONS (3)
  - Fatigue [Unknown]
  - Nausea [Unknown]
  - Diarrhoea [Unknown]
